FAERS Safety Report 7234417-7 (Version None)
Quarter: 2011Q1

REPORT INFORMATION
  Report Type: 
  Country: None (occurrence: None)
  Receive Date: 20110119
  Receipt Date: 20110102
  Transmission Date: 20110831
  Serious: Yes (Hospitalization)
  Sender: FDA-Public Use
  Company Number: IL-MEDIMMUNE-MEDI-0012266

PATIENT
  Sex: Female
  Weight: 1.98 kg

DRUGS (2)
  1. SYNAGIS [Suspect]
     Dates: start: 20101205, end: 20101205
  2. SYNAGIS [Suspect]

REACTIONS (3)
  - CHOKING [None]
  - CYANOSIS [None]
  - RESPIRATORY SYNCYTIAL VIRUS TEST POSITIVE [None]
